FAERS Safety Report 11757299 (Version 1)
Quarter: 2015Q4

REPORT INFORMATION
  Report Type: Spontaneous
  Country: US (occurrence: None)
  Receive Date: 20151119
  Receipt Date: 20151119
  Transmission Date: 20160304
  Serious: Yes (Hospitalization)
  Sender: FDA-Public Use
  Company Number: None

PATIENT
  Age: 45 Year
  Sex: Male
  Weight: 108.5 kg

DRUGS (1)
  1. CIPROFLOXACIN. [Suspect]
     Active Substance: CIPROFLOXACIN
     Indication: OSTEOMYELITIS
     Route: 048
     Dates: start: 20150624, end: 20150719

REACTIONS (11)
  - Tinnitus [None]
  - Pyrexia [None]
  - Burning sensation [None]
  - Vomiting [None]
  - Urticaria [None]
  - Skin exfoliation [None]
  - Photosensitivity reaction [None]
  - Pruritus [None]
  - Nausea [None]
  - Blister [None]
  - Rash [None]

NARRATIVE: CASE EVENT DATE: 20150708
